FAERS Safety Report 15223858 (Version 2)
Quarter: 2018Q3

REPORT INFORMATION
  Report Type: Report from Study
  Country: US (occurrence: US)
  Receive Date: 20180731
  Receipt Date: 20180821
  Transmission Date: 20181010
  Serious: Yes (Other)
  Sender: FDA-Public Use
  Company Number: US-GILEAD-2018-0345617

PATIENT
  Age: 61 Year
  Sex: Male

DRUGS (3)
  1. AMBRISENTAN [Suspect]
     Active Substance: AMBRISENTAN
     Indication: PRODUCT USED FOR UNKNOWN INDICATION
     Dosage: 10 MG, QD
     Route: 065
     Dates: start: 20170209
  2. TYVASO [Concomitant]
     Active Substance: TREPROSTINIL
  3. SILDENAFIL CITRATE. [Concomitant]
     Active Substance: SILDENAFIL CITRATE

REACTIONS (8)
  - Hiccups [Not Recovered/Not Resolved]
  - Dyspnoea exertional [Unknown]
  - Palpitations [Unknown]
  - Decreased activity [Unknown]
  - Vomiting [Not Recovered/Not Resolved]
  - Major depression [Not Recovered/Not Resolved]
  - Dysphagia [Not Recovered/Not Resolved]
  - Hypersensitivity [Not Recovered/Not Resolved]
